FAERS Safety Report 8694396 (Version 3)
Quarter: 2013Q1

REPORT INFORMATION
  Report Type: Spontaneous
  Country: US (occurrence: US)
  Receive Date: 20120731
  Receipt Date: 20130110
  Transmission Date: 20140127
  Serious: Yes (Hospitalization)
  Sender: FDA-Public Use
  Company Number: US-ELI_LILLY_AND_COMPANY-US201207007093

PATIENT
  Age: 74 Year
  Sex: Female
  Weight: 59.86 kg

DRUGS (29)
  1. FORTEO [Suspect]
     Indication: OSTEOPOROSIS
     Dosage: 20 U, QD
     Route: 058
     Dates: start: 201204
  2. ALBUTEROL [Concomitant]
     Dosage: UNK, UNKNOWN
  3. XANAX [Concomitant]
     Dosage: UNK, UNKNOWN
  4. AMIODARONE [Concomitant]
     Dosage: UNK, UNKNOWN
  5. VITAMIN C [Concomitant]
     Dosage: UNK, UNKNOWN
  6. ASPIRIN [Concomitant]
     Dosage: UNK, UNKNOWN
  7. CALCIUM WITH VITAMIN D [Concomitant]
     Dosage: UNK, UNKNOWN
  8. CHOLESTYRAMINE [Concomitant]
     Dosage: UNK, UNKNOWN
  9. VYTORIN [Concomitant]
     Dosage: UNK, UNKNOWN
  10. FERROUS SULFATE [Concomitant]
     Dosage: UNK, UNKNOWN
  11. MUCINEX [Concomitant]
     Dosage: UNK, UNKNOWN
  12. ACIDOPHILUS [Concomitant]
     Dosage: UNK, UNKNOWN
  13. MAGNESIUM OXIDE [Concomitant]
     Dosage: UNK, UNKNOWN
  14. MEGACE [Concomitant]
     Dosage: UNK, UNKNOWN
  15. METOPROLOL [Concomitant]
     Dosage: UNK, UNKNOWN
  16. NIASPAN [Concomitant]
     Dosage: UNK, UNKNOWN
  17. NYSTATIN [Concomitant]
     Dosage: UNK, UNKNOWN
  18. PROTONIX [Concomitant]
     Dosage: UNK, UNKNOWN
  19. ZOLOFT [Concomitant]
     Dosage: UNK, UNKNOWN
     Route: 048
  20. TRAZODONE [Concomitant]
  21. BISOPROLOL HCT [Concomitant]
     Dosage: 1 DF, QD
     Route: 048
  22. BUTALBITAL COMPOUND [Concomitant]
     Indication: PAIN
     Dosage: UNK, PRN
  23. KEFLEX                                  /UNK/ [Concomitant]
     Dosage: 500 MG, QID
  24. LORATADINE [Concomitant]
     Dosage: 10 MG, QD
     Route: 048
  25. LORAZEPAM [Concomitant]
     Dosage: 2 MG, QID
     Route: 048
  26. NEXIUM [Concomitant]
     Dosage: 40 MG, QD
     Route: 048
  27. SEPTRA DS [Concomitant]
     Dosage: 1 DF, BID
     Route: 048
  28. SIMVASTATIN [Concomitant]
     Dosage: 40 MG, QD
     Route: 048
  29. PHENERGAN [Concomitant]
     Dosage: 25 MG, PRN
     Route: 048

REACTIONS (6)
  - Pneumonia [Unknown]
  - Urinary tract infection [Unknown]
  - Clostridium difficile infection [Unknown]
  - Dehydration [Unknown]
  - Haemoptysis [Unknown]
  - Asthenia [Unknown]
